FAERS Safety Report 8766189 (Version 2)
Quarter: 2012Q4

REPORT INFORMATION
  Report Type: 
  Country: JP (occurrence: JP)
  Receive Date: 20120904
  Receipt Date: 20121018
  Transmission Date: 20130627
  Serious: Yes (Hospitalization, Other)
  Sender: FDA-Public Use
  Company Number: JP-WATSON-2012-15287

PATIENT
  Age: 63 Year
  Sex: Female
  Weight: 49.7 kg

DRUGS (6)
  1. PREDNISOLONE (UNKNOWN) [Suspect]
     Indication: BEHCET^S SYNDROME
     Dosage: 30 mg, daily
     Route: 065
     Dates: start: 200904
  2. PREDNISOLONE (UNKNOWN) [Suspect]
     Dosage: 10 mg, daily
     Route: 065
     Dates: start: 200906
  3. PREDNISOLONE (UNKNOWN) [Suspect]
     Dosage: 60 mg, daily
     Route: 065
     Dates: start: 200909
  4. INFLIXIMAB [Suspect]
     Indication: BEHCET^S SYNDROME
     Dosage: 5 mg/kg, unknown
     Route: 065
     Dates: start: 200906
  5. HYDROCORTISON                      /00028601/ [Suspect]
     Indication: BEHCET^S SYNDROME
     Dosage: 200 mg, unknown
     Route: 065
  6. METHYLPREDNISOLONE [Suspect]
     Indication: BEHCET^S SYNDROME
     Dosage: 1 g, daily
     Route: 065

REACTIONS (4)
  - Gastric ulcer [Recovered/Resolved]
  - Cytomegalovirus infection [Recovered/Resolved]
  - Behcet^s syndrome [Unknown]
  - Drug ineffective [Unknown]
